FAERS Safety Report 4483953-5 (Version None)
Quarter: 2004Q4

REPORT INFORMATION
  Report Type: 
  Country: None (occurrence: None)
  Receive Date: 20041025
  Receipt Date: 20040210
  Transmission Date: 20050328
  Serious: Yes (Hospitalization)
  Sender: FDA-Public Use
  Company Number: JP-BRISTOL-MYERS SQUIBB COMPANY-12500435

PATIENT
  Age: 39 Year
  Sex: Male

DRUGS (6)
  1. ZERIT [Suspect]
     Indication: HIV INFECTION
     Route: 048
     Dates: end: 20021001
  2. VIDEX [Suspect]
     Indication: HIV INFECTION
     Route: 048
     Dates: end: 20020101
  3. REBETOL [Suspect]
     Indication: HIV INFECTION
     Route: 048
     Dates: end: 20020101
  4. RETROVIR [Concomitant]
     Route: 048
  5. SAQUINAVIR MESYLATE [Concomitant]
     Route: 048
  6. PEGINTERFERON ALFA-2B [Concomitant]
     Dates: start: 20020805

REACTIONS (2)
  - HYPERLACTACIDAEMIA [None]
  - PANCREATITIS ACUTE [None]
